FAERS Safety Report 10215328 (Version 1)
Quarter: 2014Q2

REPORT INFORMATION
  Report Type: Spontaneous
  Country: PT (occurrence: PT)
  Receive Date: 20140603
  Receipt Date: 20140603
  Transmission Date: 20141212
  Serious: Yes (Other)
  Sender: FDA-Public Use
  Company Number: PHHY2014PT065225

PATIENT
  Age: 85 Year
  Sex: 0

DRUGS (1)
  1. METHOTREXATE [Suspect]
     Indication: RHEUMATOID ARTHRITIS

REACTIONS (5)
  - Angiocentric lymphoma [Unknown]
  - Nasal septum disorder [Unknown]
  - Inflammation [Unknown]
  - Epistaxis [Unknown]
  - Skin lesion [Unknown]
